FAERS Safety Report 23736976 (Version 1)
Quarter: 2024Q2

REPORT INFORMATION
  Report Type: Spontaneous
  Country: IT (occurrence: IT)
  Receive Date: 20240412
  Receipt Date: 20240412
  Transmission Date: 20240716
  Serious: Yes (Other)
  Sender: FDA-Public Use
  Company Number: IT-SUN PHARMACEUTICAL INDUSTRIES LTD-2024RR-441791

PATIENT
  Sex: Male

DRUGS (3)
  1. SERTRALINE [Suspect]
     Active Substance: SERTRALINE HYDROCHLORIDE
     Indication: Intentional overdose
     Dosage: 300 MILLIGRAM, INGESTED 6 CP OF 50 MG
     Route: 048
     Dates: start: 20231230, end: 20231230
  2. QUETIAPINE [Suspect]
     Active Substance: QUETIAPINE
     Indication: Intentional overdose
     Dosage: 2000 MILLIGRAM, REPORTED INTAKE OF 10 CP OF 200 MG
     Route: 048
     Dates: start: 20231230, end: 20231230
  3. VALPROATE SODIUM [Suspect]
     Active Substance: VALPROATE SODIUM
     Indication: Intentional overdose
     Dosage: 7000 MILLIGRAM, REPORTED INTAKE OF 14 CP OF 500 MG.
     Route: 048
     Dates: start: 20231230, end: 20231230

REACTIONS (2)
  - Intentional overdose [Not Recovered/Not Resolved]
  - Sopor [Not Recovered/Not Resolved]

NARRATIVE: CASE EVENT DATE: 20231230
